FAERS Safety Report 7295719-1 (Version None)
Quarter: 2011Q1

REPORT INFORMATION
  Report Type: 
  Country: None (occurrence: None)
  Receive Date: 20110216
  Receipt Date: 20101216
  Transmission Date: 20110831
  Serious: No
  Sender: FDA-Public Use
  Company Number: US-ABBOTT-10P-163-0692133-00

PATIENT

DRUGS (2)
  1. SIMCOR [Suspect]
     Indication: PRODUCT USED FOR UNKNOWN INDICATION
     Dates: end: 20101214
  2. SIMCOR [Suspect]
     Dosage: 1000/20MG ONE DOSE
     Dates: start: 20101215

REACTIONS (2)
  - CHILLS [None]
  - FLUSHING [None]
